FAERS Safety Report 10225248 (Version 1)
Quarter: 2014Q2

REPORT INFORMATION
  Report Type: Spontaneous
  Country: US (occurrence: US)
  Receive Date: 20140609
  Receipt Date: 20140609
  Transmission Date: 20141212
  Serious: No
  Sender: FDA-Public Use
  Company Number: US-ASTELLAS-2014US005559

PATIENT
  Sex: Male

DRUGS (1)
  1. XTANDI [Suspect]
     Indication: NEOPLASM PROSTATE
     Route: 048
     Dates: start: 201402

REACTIONS (4)
  - Flatulence [Unknown]
  - Fatigue [Unknown]
  - Insomnia [Unknown]
  - Muscular weakness [Unknown]
